FAERS Safety Report 22013043 (Version 3)
Quarter: 2023Q1

REPORT INFORMATION
  Report Type: Report from Study
  Country: US (occurrence: US)
  Receive Date: 20230220
  Receipt Date: 20230322
  Transmission Date: 20230417
  Serious: Yes (Hospitalization, Other)
  Sender: FDA-Public Use
  Company Number: US-PFIZER INC-PV202200133640

PATIENT
  Age: 64 Year
  Sex: Female

DRUGS (4)
  1. IBRANCE [Suspect]
     Active Substance: PALBOCICLIB
     Indication: Breast cancer female
     Dosage: 125 MG, CYCLIC (DAILY FOR 21 DAYS THEN 7 DAYS OFF)
     Route: 048
     Dates: start: 20221222
  2. IBRANCE [Suspect]
     Active Substance: PALBOCICLIB
     Dosage: 100 MG, CYCLIC (TAKE 1 TABLET BY MOUTH ONCE DAILY ON DAYS 1-21 OF A 28 DAY CYCLE)
     Route: 048
     Dates: start: 20230219
  3. LETROZOLE [Concomitant]
     Active Substance: LETROZOLE
     Dosage: UNK
  4. FASLODEX [Concomitant]
     Active Substance: FULVESTRANT
     Dosage: UNK

REACTIONS (10)
  - Blood potassium decreased [Unknown]
  - Oesophageal candidiasis [Unknown]
  - Dysphagia [Recovering/Resolving]
  - Diarrhoea [Recovered/Resolved]
  - Product dose omission issue [Unknown]
  - Dry mouth [Not Recovered/Not Resolved]
  - Palpitations [Recovering/Resolving]
  - Malaise [Unknown]
  - Vomiting [Unknown]
  - Oropharyngeal pain [Recovering/Resolving]

NARRATIVE: CASE EVENT DATE: 20221201
